FAERS Safety Report 7985874-X (Version None)
Quarter: 2011Q4

REPORT INFORMATION
  Report Type: 
  Country: None (occurrence: None)
  Receive Date: 20111214
  Receipt Date: 20111129
  Transmission Date: 20120403
  Serious: Yes (Other)
  Sender: FDA-Public Use
  Company Number: 2011SP055849

PATIENT
  Age: 28 Year
  Sex: Female

DRUGS (2)
  1. PEG-INTRON [Suspect]
     Indication: HEPATITIS C
     Dosage: 120 MCG;QW;SC
     Route: 058
     Dates: start: 20111025
  2. PEG-INTRON [Suspect]

REACTIONS (5)
  - ANXIETY [None]
  - PANIC ATTACK [None]
  - UNDERDOSE [None]
  - FATIGUE [None]
  - FEELING ABNORMAL [None]
